FAERS Safety Report 14693088 (Version 1)
Quarter: 2018Q1

REPORT INFORMATION
  Report Type: Report from Study
  Country: NL (occurrence: NL)
  Receive Date: 20180329
  Receipt Date: 20180329
  Transmission Date: 20180509
  Serious: Yes (Death)
  Sender: FDA-Public Use
  Company Number: PHHY2018NL055142

PATIENT
  Age: 55 Year
  Sex: Female

DRUGS (2)
  1. ZOMETA [Suspect]
     Active Substance: ZOLEDRONIC ACID
     Dosage: UNK
     Route: 065
     Dates: start: 20160317
  2. ZOMETA [Suspect]
     Active Substance: ZOLEDRONIC ACID
     Indication: BREAST CANCER
     Dosage: 4 MG, UNK (4 MG/100 ML) ONCE IN 12 WEEKS
     Route: 042

REACTIONS (2)
  - Inappropriate schedule of drug administration [Unknown]
  - Death [Fatal]

NARRATIVE: CASE EVENT DATE: 20170201
